FAERS Safety Report 5975675-6 (Version None)
Quarter: 2008Q4

REPORT INFORMATION
  Report Type: 
  Country: None (occurrence: None)
  Receive Date: 20081202
  Receipt Date: 20081125
  Transmission Date: 20090506
  Serious: Yes (Hospitalization)
  Sender: FDA-Public Use
  Company Number: PHHY2008CA29048

PATIENT
  Sex: Male

DRUGS (2)
  1. SANDOSTATIN LAR [Suspect]
     Indication: CARCINOID TUMOUR
     Dosage: 20 MG EVERY 4 WEEKS
     Route: 030
     Dates: start: 20060831
  2. SANDOSTATIN LAR [Suspect]
     Indication: NEUROENDOCRINE TUMOUR

REACTIONS (4)
  - ABDOMINAL PAIN [None]
  - BILIARY SPHINCTEROTOMY [None]
  - CHOLELITHIASIS [None]
  - CHOLELITHOTOMY [None]
